FAERS Safety Report 7468957-2 (Version None)
Quarter: 2011Q2

REPORT INFORMATION
  Report Type: 
  Country: None (occurrence: None)
  Receive Date: 20110429
  Receipt Date: 20110421
  Transmission Date: 20111010
  Serious: Yes (Other)
  Sender: FDA-Public Use
  Company Number: 2011088130

PATIENT
  Sex: Female

DRUGS (2)
  1. FRAGMIN [Suspect]
  2. PROPYLTHIOURACIL [Suspect]

REACTIONS (3)
  - HYPERTHYROIDISM [None]
  - DRUG EXPOSURE DURING PREGNANCY [None]
  - DRUG INTERACTION [None]
